FAERS Safety Report 4596044-X (Version None)
Quarter: 2005Q1

REPORT INFORMATION
  Report Type: 
  Country: None (occurrence: None)
  Receive Date: 20050224
  Receipt Date: 20050207
  Transmission Date: 20050727
  Serious: Yes (Hospitalization, Other)
  Sender: FDA-Public Use
  Company Number: JP_050205828

PATIENT
  Age: 64 Year
  Sex: Male
  Weight: 40 kg

DRUGS (4)
  1. GEMZAR [Suspect]
     Indication: PANCREATIC CARCINOMA
     Dosage: 1000 MG OTHER
     Dates: start: 20021105, end: 20021203
  2. COSPANON (FLOPROPIONE) [Concomitant]
  3. URSODIOL [Concomitant]
  4. MS CONTIN [Concomitant]

REACTIONS (5)
  - DISEASE PROGRESSION [None]
  - NEUTROPHIL COUNT DECREASED [None]
  - PYOTHORAX [None]
  - STAPHYLOCOCCAL INFECTION [None]
  - WHITE BLOOD CELL COUNT DECREASED [None]
